FAERS Safety Report 15171349 (Version 1)
Quarter: 2018Q3

REPORT INFORMATION
  Report Type: Spontaneous
  Country: ES (occurrence: ES)
  Receive Date: 20180720
  Receipt Date: 20180720
  Transmission Date: 20181010
  Serious: Yes (Hospitalization, Other)
  Sender: FDA-Public Use
  Company Number: ES-TEVA-2018-ES-928523

PATIENT
  Age: 49 Year
  Sex: Male
  Weight: 104 kg

DRUGS (16)
  1. FORTECORTIN 4 MG COMPRIMIDOS, 30 COMPRIMIDOS [Interacting]
     Active Substance: DEXAMETHASONE
     Route: 048
     Dates: start: 20180131, end: 20180206
  2. PSICOTRIC PROLONG 50 MG COMPRIMIDOS DE LIBERACION PROLONGADA EFG , 60 [Concomitant]
     Route: 048
  3. VALSART?N + HIDROCLOROTIAZIDA [Concomitant]
     Active Substance: HYDROCHLOROTHIAZIDE\VALSARTAN
     Dosage: 1 DOSAGE FORMS DAILY;
     Route: 048
  4. NOVORAPID FLEXPEN 100 U/ML, SOLUCION INYECTABLE EN UNA PLUMA PRECARGAD [Concomitant]
     Route: 058
  5. DEXAMETHASONE. [Suspect]
     Active Substance: DEXAMETHASONE
     Route: 042
     Dates: start: 20180128, end: 20180130
  6. OMEPRAZOL (2141A) [Concomitant]
     Active Substance: OMEPRAZOLE
     Dosage: 20 MILLIGRAM DAILY;
     Route: 048
  7. MANIDIPINO (2841A) [Concomitant]
     Route: 048
  8. BETAMETASONA (491A) [Interacting]
     Active Substance: BETAMETHASONE
     Dates: start: 20180128, end: 20180130
  9. PSICOTRIC PROLONG 50 MG COMPRIMIDOS DE LIBERACION PROLONGADA EFG , 60 [Concomitant]
     Route: 048
  10. METFORMINA (1359A) [Concomitant]
     Active Substance: METFORMIN HYDROCHLORIDE
     Route: 048
  11. FENTANILO (1543A) [Concomitant]
     Active Substance: FENTANYL
     Route: 062
  12. LORAZEPAM (1864A) [Concomitant]
     Active Substance: LORAZEPAM
     Route: 048
  13. ZARELIS RETARD 225 MG COMPRIMIDOS DE LIBERACION PROLONGADA, 30 COMPRIM [Concomitant]
     Dosage: 225 MILLIGRAM DAILY;
     Route: 048
  14. TRAZODONA (3160A) [Concomitant]
     Active Substance: TRAZODONE HYDROCHLORIDE
     Route: 048
  15. PARACETAMOL (12A) [Concomitant]
     Active Substance: ACETAMINOPHEN
     Route: 048
  16. LANTUS SOLOSTAR 100 UNIDADES/ML SOLUCION INYECTABLE EN PLUMA PRECARGAD [Concomitant]
     Dosage: 18 IU (INTERNATIONAL UNIT) DAILY;
     Route: 058

REACTIONS (4)
  - Psychotic disorder [Recovering/Resolving]
  - Depression [Recovering/Resolving]
  - Suicidal ideation [Recovered/Resolved]
  - Drug interaction [Unknown]

NARRATIVE: CASE EVENT DATE: 20180203
